FAERS Safety Report 8445102-8 (Version None)
Quarter: 2012Q2

REPORT INFORMATION
  Report Type: 
  Country: None (occurrence: None)
  Receive Date: 20120618
  Receipt Date: 20120613
  Transmission Date: 20120825
  Serious: No
  Sender: FDA-Public Use
  Company Number: US-PFIZER INC-2012120228

PATIENT
  Sex: Female
  Weight: 89.796 kg

DRUGS (3)
  1. PRISTIQ [Suspect]
     Indication: DEPRESSION
     Dosage: 50 MG, DAILY
     Route: 048
     Dates: start: 20100101, end: 20120301
  2. VASOTEC [Concomitant]
     Indication: HYPERTENSION
     Dosage: 5 MG, DAILY
  3. SEROQUEL XR [Concomitant]
     Indication: DEPRESSION
     Dosage: 50 MG, DAILY

REACTIONS (1)
  - MEDICATION RESIDUE [None]
